FAERS Safety Report 8268021-9 (Version None)
Quarter: 2012Q2

REPORT INFORMATION
  Report Type: 
  Country: None (occurrence: None)
  Receive Date: 20120409
  Receipt Date: 20120330
  Transmission Date: 20120825
  Serious: Yes (Other)
  Sender: FDA-Public Use
  Company Number: US-BAYER-2012-031640

PATIENT
  Age: 44 Year
  Sex: Female

DRUGS (1)
  1. MIRENA [Suspect]
     Indication: MENORRHAGIA
     Dosage: 20 MCG/24HR, CONT
     Route: 015
     Dates: start: 20110801, end: 20120201

REACTIONS (5)
  - GENITAL HAEMORRHAGE [None]
  - VISUAL ACUITY REDUCED [None]
  - CONFUSIONAL STATE [None]
  - HYPOAESTHESIA [None]
  - MUSCLE SPASMS [None]
